FAERS Safety Report 17016086 (Version 2)
Quarter: 2019Q4

REPORT INFORMATION
  Report Type: Report from Study
  Country: US (occurrence: US)
  Receive Date: 20191111
  Receipt Date: 20191128
  Transmission Date: 20200122
  Serious: Yes (Death, Other)
  Sender: FDA-Public Use
  Company Number: US-PFIZER INC-2019485100

PATIENT
  Age: 16 Year
  Sex: Female

DRUGS (3)
  1. APIXABAN [Suspect]
     Active Substance: APIXABAN
     Dosage: UNK
  2. IBUPROFEN. [Suspect]
     Active Substance: IBUPROFEN
     Dosage: UNK
  3. IRON [Suspect]
     Active Substance: IRON
     Dosage: UNK

REACTIONS (13)
  - Hypotension [Fatal]
  - Depressed level of consciousness [Fatal]
  - Coagulopathy [Fatal]
  - Acute respiratory distress syndrome [Fatal]
  - Metabolic acidosis [Fatal]
  - Hepatotoxicity [Fatal]
  - Brain death [Fatal]
  - Coma [Fatal]
  - Thrombocytopenia [Fatal]
  - Anion gap increased [Fatal]
  - Leukocytosis [Fatal]
  - Toxicity to various agents [Fatal]
  - Acute lung injury [Fatal]

NARRATIVE: CASE EVENT DATE: 2018
